FAERS Safety Report 19720545 (Version 3)
Quarter: 2021Q4

REPORT INFORMATION
  Report Type: Report from Study
  Country: CA (occurrence: CA)
  Receive Date: 20210818
  Receipt Date: 20211118
  Transmission Date: 20220304
  Serious: Yes (Hospitalization, Other)
  Sender: FDA-Public Use
  Company Number: CA-TAIHO ONCOLOGY INC-EU-2021-02332

PATIENT
  Age: 69 Year
  Sex: Male
  Weight: 61.5 kg

DRUGS (1)
  1. LONSURF [Suspect]
     Active Substance: TIPIRACIL HYDROCHLORIDE\TRIFLURIDINE
     Indication: Colorectal cancer metastatic
     Dosage: DOSE, FREQUENCY AND CURRENT CYCLE UNKNOWN
     Route: 048
     Dates: start: 20201116

REACTIONS (5)
  - Ureteric obstruction [Unknown]
  - Renal impairment [Unknown]
  - Urethral stent insertion [Unknown]
  - Red blood cell count decreased [Unknown]
  - Blood electrolytes decreased [Unknown]
